FAERS Safety Report 10581453 (Version 5)
Quarter: 2015Q2

REPORT INFORMATION
  Report Type: Spontaneous
  Country: JP (occurrence: JP)
  Receive Date: 20141113
  Receipt Date: 20150403
  Transmission Date: 20150821
  Serious: Yes (Other)
  Sender: FDA-Public Use
  Company Number: JP-ASTELLAS-2014JP024366

PATIENT
  Age: 80 Year
  Sex: Male
  Weight: 46 kg

DRUGS (9)
  1. CELECOX [Suspect]
     Active Substance: CELECOXIB
     Indication: PAIN
  2. TAKEPRON [Concomitant]
     Active Substance: LANSOPRAZOLE
     Indication: PROSTATE CANCER
     Route: 048
  3. DECADRON [Concomitant]
     Active Substance: DEXAMETHASONE
     Indication: PROSTATE CANCER
     Route: 048
     Dates: start: 20130807
  4. CELECOX [Suspect]
     Active Substance: CELECOXIB
     Indication: PROSTATE CANCER
     Route: 048
     Dates: start: 20140609, end: 20140623
  5. BLOPRESS [Concomitant]
     Active Substance: CANDESARTAN CILEXETIL
     Indication: HYPERTENSION
     Route: 048
  6. DENOTAS CHEWABLE [Concomitant]
     Active Substance: CALCIUM CARBONATE\CHOLECALCIFEROL\MAGNESIUM CARBONATE
     Indication: PROSTATE CANCER
     Route: 048
     Dates: start: 20130624
  7. XTANDI [Suspect]
     Active Substance: ENZALUTAMIDE
     Indication: HORMONE-REFRACTORY PROSTATE CANCER
     Route: 048
     Dates: start: 20140609, end: 20140623
  8. MUCOSTA [Concomitant]
     Active Substance: REBAMIPIDE
     Indication: PROSTATE CANCER
     Route: 048
  9. RAYNANON [Concomitant]
     Indication: PROSTATE CANCER
     Dosage: UNK UNK, AS NEEDED.
     Route: 054
     Dates: start: 20140609

REACTIONS (4)
  - Intentional product use issue [Unknown]
  - Erythema multiforme [Recovered/Resolved]
  - Fatigue [Not Recovered/Not Resolved]
  - Off label use [Unknown]

NARRATIVE: CASE EVENT DATE: 20140609
